FAERS Safety Report 9872206 (Version 1)
Quarter: 2014Q1

REPORT INFORMATION
  Report Type: Spontaneous
  Country: US (occurrence: US)
  Receive Date: 20140205
  Receipt Date: 20140205
  Transmission Date: 20141002
  Serious: Yes (Hospitalization)
  Sender: FDA-Public Use
  Company Number: US-B.I. PHARMACEUTICALS,INC./RIDGEFIELD-2014-BI-04201BP

PATIENT
  Age: 55 Year
  Sex: Female
  Weight: 102 kg

DRUGS (9)
  1. COMBIVENT [Suspect]
     Indication: ASTHMA
     Dosage: STRENGTH: 20 MCG / 100 MCG;
     Route: 055
     Dates: start: 201307
  2. ASPIRIN [Concomitant]
     Indication: STENT PLACEMENT
     Dosage: 325 MG
     Route: 048
  3. COREG [Concomitant]
     Indication: STENT PLACEMENT
     Dosage: 6.25 MG
     Route: 048
     Dates: start: 201312
  4. EPHENENT [Concomitant]
     Indication: STENT PLACEMENT
     Dosage: 10 MG
     Route: 048
     Dates: start: 201312
  5. ADVAIR DISKUS [Concomitant]
     Indication: ASTHMA
     Dosage: (INHALATION AEROSOL) STRENGTH: 500 MCG/50MCG; DAILY DOSE: 1000 MCG/100 MCG
     Route: 055
  6. PREDNISONE [Concomitant]
     Indication: ASTHMA
     Dosage: 20 MG
     Route: 048
  7. SPIRONOLACTONE [Concomitant]
     Indication: FLUID RETENTION
     Dosage: 25 MG
     Route: 055
  8. PREVACID OTC [Concomitant]
     Indication: GASTROOESOPHAGEAL REFLUX DISEASE
     Dosage: 15 MG
     Route: 048
  9. LEVOTHYROXINE [Concomitant]
     Indication: HYPOTHYROIDISM
     Dosage: 0.5 MCG
     Route: 048

REACTIONS (3)
  - Myocardial infarction [Recovered/Resolved]
  - Anaphylactic reaction [Recovered/Resolved]
  - Off label use [Unknown]
